FAERS Safety Report 9025227 (Version 1)
Quarter: 2013Q1

REPORT INFORMATION
  Report Type: Spontaneous
  Country: US (occurrence: US)
  Receive Date: 20130122
  Receipt Date: 20130122
  Transmission Date: 20140127
  Serious: No
  Sender: FDA-Public Use
  Company Number: US-GLAXOSMITHKLINE-A0640901A

PATIENT
  Age: 60 Year
  Sex: Male

DRUGS (1)
  1. COMMIT [Suspect]
     Indication: EX-TOBACCO USER
     Dates: start: 20070221, end: 20070222

REACTIONS (3)
  - Stomatitis [Recovered/Resolved]
  - Gingival bleeding [Recovered/Resolved]
  - Product quality issue [Unknown]
